FAERS Safety Report 8896721 (Version 2)
Quarter: 2013Q4

REPORT INFORMATION
  Report Type: Spontaneous
  Country: US (occurrence: US)
  Receive Date: 20121108
  Receipt Date: 20131126
  Transmission Date: 20140711
  Serious: Yes (Disabling)
  Sender: FDA-Public Use
  Company Number: US-009507513-1211USA002293

PATIENT
  Sex: Female

DRUGS (4)
  1. SINGULAIR [Suspect]
     Dosage: 10 MG, UNK
     Route: 048
  2. ZANAFLEX [Suspect]
  3. ULTRAM [Suspect]
  4. SYNTHROID [Suspect]

REACTIONS (11)
  - Back pain [Unknown]
  - Headache [Unknown]
  - Burning sensation [Unknown]
  - Pain [Unknown]
  - Spinal cord disorder [Unknown]
  - Muscle spasms [Unknown]
  - Odynophagia [Unknown]
  - Feeling abnormal [Unknown]
  - Poor quality sleep [Unknown]
  - Discomfort [Unknown]
  - Negative thoughts [Unknown]
